FAERS Safety Report 20095666 (Version 1)
Quarter: 2021Q4

REPORT INFORMATION
  Report Type: Spontaneous
  Country: US (occurrence: US)
  Receive Date: 20211122
  Receipt Date: 20211122
  Transmission Date: 20220303
  Serious: Yes (Death, Other)
  Sender: FDA-Public Use
  Company Number: US-GLAXOSMITHKLINE-US2021238030

PATIENT
  Sex: Female
  Weight: 68 kg

DRUGS (1)
  1. TRELEGY ELLIPTA [Suspect]
     Active Substance: FLUTICASONE FUROATE\UMECLIDINIUM BROMIDE\VILANTEROL TRIFENATATE
     Indication: Chronic obstructive pulmonary disease
     Dosage: N/A
     Dates: start: 20210818, end: 20211113

REACTIONS (3)
  - Internal haemorrhage [Fatal]
  - Cardiac arrest [Fatal]
  - Dyspnoea [Unknown]
